FAERS Safety Report 20403880 (Version 1)
Quarter: 2022Q1

REPORT INFORMATION
  Report Type: Spontaneous
  Country: BR (occurrence: BR)
  Receive Date: 20220131
  Receipt Date: 20220131
  Transmission Date: 20220423
  Serious: Yes (Other)
  Sender: FDA-Public Use
  Company Number: BR-SA-SAC20210628000394

PATIENT
  Age: 36 Year
  Sex: Female
  Weight: 53 kg

DRUGS (1)
  1. ENOXAPARIN SODIUM [Suspect]
     Active Substance: ENOXAPARIN SODIUM
     Dosage: UNK, EVERY 16 HOURS
     Route: 058
     Dates: start: 202103, end: 202109

REACTIONS (3)
  - Foetal vascular malperfusion [Unknown]
  - Headache [Unknown]
  - Maternal exposure during pregnancy [Unknown]

NARRATIVE: CASE EVENT DATE: 20210301
